FAERS Safety Report 18756933 (Version 1)
Quarter: 2021Q1

REPORT INFORMATION
  Report Type: Spontaneous
  Country: US (occurrence: US)
  Receive Date: 20210119
  Receipt Date: 20210119
  Transmission Date: 20210419
  Serious: No
  Sender: FDA-Public Use
  Company Number: US-DSJP-DSU-2021-100714

PATIENT
  Sex: Male

DRUGS (1)
  1. TURALIO [Suspect]
     Active Substance: PEXIDARTINIB HYDROCHLORIDE
     Indication: GIANT CELL TUMOUR OF TENDON SHEATH
     Dosage: UNK
     Route: 048

REACTIONS (3)
  - Fatigue [Unknown]
  - Pruritus [Unknown]
  - Therapy non-responder [Unknown]
